FAERS Safety Report 5488028-4 (Version None)
Quarter: 2007Q4

REPORT INFORMATION
  Report Type: 
  Country: None (occurrence: None)
  Receive Date: 20071017
  Receipt Date: 20070425
  Transmission Date: 20080405
  Serious: Yes (Hospitalization)
  Sender: FDA-Public Use
  Company Number: DE-JNJFOC-20061104624

PATIENT
  Age: 69 Year
  Sex: Female

DRUGS (13)
  1. TAVANIC [Suspect]
     Indication: ERYSIPELAS
     Route: 042
  2. TAVANIC [Suspect]
     Route: 048
  3. SIMVASTATIN [Suspect]
     Indication: LOW DENSITY LIPOPROTEIN INCREASED
     Route: 048
  4. TORSEMIDE [Concomitant]
     Indication: CORONARY ARTERY DISEASE
     Route: 048
  5. ATACAND [Concomitant]
     Route: 048
  6. CARMEN [Concomitant]
     Route: 048
  7. MOXONIDIN [Concomitant]
     Indication: CORONARY ARTERY DISEASE
     Route: 048
  8. METOPROLOL SUCCINATE [Concomitant]
     Indication: CORONARY ARTERY DISEASE
     Route: 048
  9. ZOCOR [Concomitant]
     Route: 048
  10. NOVAMINSULFON [Concomitant]
     Route: 048
  11. PANTOPRAZOLE SODIUM [Concomitant]
     Route: 048
  12. INSUMAN RAPID [Concomitant]
     Route: 058
  13. INSUMAN BASAL [Concomitant]
     Route: 058

REACTIONS (10)
  - ATRIAL FIBRILLATION [None]
  - ATRIOVENTRICULAR BLOCK SECOND DEGREE [None]
  - BLOOD PRESSURE INCREASED [None]
  - BRAIN HYPOXIA [None]
  - BURNING SENSATION [None]
  - DIZZINESS [None]
  - EPILEPSY [None]
  - HEADACHE [None]
  - HYPOGLYCAEMIA [None]
  - SYNCOPE [None]
